FAERS Safety Report 7939476-1 (Version None)
Quarter: 2011Q4

REPORT INFORMATION
  Report Type: 
  Country: None (occurrence: None)
  Receive Date: 20111125
  Receipt Date: 20111117
  Transmission Date: 20120403
  Serious: Yes (Other)
  Sender: FDA-Public Use
  Company Number: BR-ROCHE-795656

PATIENT
  Age: 27 Year
  Sex: Male
  Weight: 100 kg

DRUGS (13)
  1. ROCEPHIN [Suspect]
     Indication: PNEUMONIA
     Dosage: FREQ: EVERY 12 HOUR.
     Route: 042
     Dates: start: 20110801, end: 20110808
  2. ENOXAPARIN SODIUM [Concomitant]
  3. ZOFRAN [Concomitant]
  4. DIGESAN [Concomitant]
  5. NEURONTIN [Concomitant]
     Dosage: DRUG NAME REPORTED AS: NEUROTIN
  6. NIPRIDE [Concomitant]
  7. ANALGESIC NOS [Concomitant]
  8. AMITRIPTYLINE HCL [Concomitant]
  9. MORPHINE SULFATE [Concomitant]
  10. LOSARTAN POTASSIUM [Concomitant]
  11. PANTOPRAZOLE [Concomitant]
  12. NOVALGINA [Concomitant]
  13. ZITHROMAX [Concomitant]

REACTIONS (6)
  - BRONCHOSPASM [None]
  - ERYTHEMA [None]
  - LARYNGEAL OEDEMA [None]
  - HYPERSENSITIVITY [None]
  - NAUSEA [None]
  - FACE OEDEMA [None]
